FAERS Safety Report 8471622-6 (Version None)
Quarter: 2012Q2

REPORT INFORMATION
  Report Type: 
  Country: None (occurrence: None)
  Receive Date: 20120323
  Receipt Date: 20111213
  Transmission Date: 20120825
  Serious: Yes (Disabling)
  Sender: FDA-Public Use
  Company Number: 163-21880-11100217

PATIENT
  Age: 62 Year
  Sex: Male

DRUGS (6)
  1. DEXAMETHASONE [Suspect]
     Indication: MULTIPLE MYELOMA
     Dosage: 20 MG, ONCE/WEEK
     Dates: start: 20110601
  2. LENALIDOMIDE [Suspect]
     Indication: MULTIPLE MYELOMA
     Dosage: 25 MG, QD X 21 D, 3 WEEKS OFF 4-6 WEEKS, PO
     Route: 048
     Dates: start: 20110601
  3. MORPHINE [Concomitant]
  4. ASPIRIN [Concomitant]
  5. THALOMID [Suspect]
     Indication: MULTIPLE MYELOMA
     Dosage: 100 MG, DAILY X 3 WEEKS OF 4, PO
     Route: 048
     Dates: start: 20110601
  6. FENTANYL [Concomitant]

REACTIONS (2)
  - FATIGUE [None]
  - JOINT SWELLING [None]
